FAERS Safety Report 6243058-X (Version None)
Quarter: 2009Q2

REPORT INFORMATION
  Report Type: 
  Country: None (occurrence: None)
  Receive Date: 20090624
  Receipt Date: 20090612
  Transmission Date: 20091009
  Serious: Yes (Hospitalization)
  Sender: FDA-Public Use
  Company Number: DE-ELI_LILLY_AND_COMPANY-DE200906003203

PATIENT
  Age: 65 Year
  Sex: Female

DRUGS (6)
  1. ZYPREXA [Suspect]
     Indication: MAJOR DEPRESSION
     Dosage: UNK, DAILY (1/D)
     Route: 048
     Dates: start: 20070801
  2. ZYPREXA [Suspect]
     Dosage: 7.5 MG, DAILY (1/D)
     Route: 048
     Dates: start: 20080801, end: 20090507
  3. MIRTAZAPINE [Concomitant]
     Dosage: 30 MG, UNK
     Route: 048
  4. SAROTEN [Concomitant]
     Dosage: 30 MG, UNK
     Route: 048
  5. BELOC-ZOK [Concomitant]
     Dosage: 47.5 MG, UNK
     Route: 048
  6. ATACAND [Concomitant]
     Dosage: 16 MG, UNK
     Route: 048

REACTIONS (5)
  - AKATHISIA [None]
  - DYSKINESIA [None]
  - DYSPHAGIA [None]
  - MYOCLONUS [None]
  - OFF LABEL USE [None]
